FAERS Safety Report 9828668 (Version 3)
Quarter: 2014Q2

REPORT INFORMATION
  Report Type: Spontaneous
  Country: US (occurrence: US)
  Receive Date: 20140117
  Receipt Date: 20140422
  Transmission Date: 20141212
  Serious: No
  Sender: FDA-Public Use
  Company Number: US-PFIZER INC-2014016456

PATIENT
  Age: 51 Year
  Sex: Female
  Weight: 39 kg

DRUGS (6)
  1. CHANTIX [Suspect]
     Indication: SMOKING CESSATION THERAPY
     Dosage: 0.5 MG, 1X/DAY
     Route: 048
     Dates: start: 201306, end: 2013
  2. CHANTIX [Suspect]
     Dosage: UNK
     Route: 048
     Dates: start: 2013
  3. DALIRESP [Concomitant]
     Indication: LUNG DISORDER
     Dosage: 500 MG, 1X/DAY
  4. ADVAIR [Concomitant]
     Indication: LUNG DISORDER
     Dosage: UNK
  5. PHENYTOIN [Concomitant]
     Indication: CONVULSION
     Dosage: UNK
  6. ATORVASTATIN [Concomitant]
     Indication: VASCULAR CALCIFICATION
     Dosage: 10 MG, UNK

REACTIONS (1)
  - Nausea [Recovered/Resolved]
